FAERS Safety Report 4385502-9 (Version None)
Quarter: 2004Q2

REPORT INFORMATION
  Report Type: 
  Country: None (occurrence: None)
  Receive Date: 20040622
  Receipt Date: 20040617
  Transmission Date: 20050107
  Serious: Yes (Life-Threatening)
  Sender: FDA-Public Use
  Company Number: HQWYE516317JUN04

PATIENT
  Age: 67 Year
  Sex: Female

DRUGS (16)
  1. RAPAMUNE [Suspect]
     Indication: PROPHYLAXIS AGAINST TRANSPLANT REJECTION
     Dosage: 2 MG 1X PER DAY
     Route: 048
     Dates: start: 19980820, end: 20040408
  2. TEMAZEPAM [Concomitant]
  3. FUROSEMIDE [Concomitant]
  4. ATENOLOL [Concomitant]
  5. FLOXAL EYEDROPS (BENZALKONIUM CHLORIDE/OFLOXACIN) [Concomitant]
  6. ATORVASTATIN CALCIUM [Concomitant]
  7. ACTRAPID INSULIN NOVO (INSULIN) [Concomitant]
  8. INSULATARD NPH HUMAN [Concomitant]
  9. PARACETAMOL (PARACETAMOL) [Concomitant]
  10. ACITRETIN (ACITRETIN) [Concomitant]
  11. ASPIRIN [Concomitant]
  12. ERGOCALCIFEROL     (ERGOCALCIFEROL) [Concomitant]
  13. IRBESARTAN (IRBESARTAN) [Concomitant]
  14. CELESTONE [Concomitant]
  15. EFUDEX [Concomitant]
  16. VISCOTEARS (CARBOMER) [Concomitant]

REACTIONS (3)
  - IMMUNOSUPPRESSION [None]
  - LYMPHADENOPATHY [None]
  - METASTASES TO LIVER [None]
